FAERS Safety Report 8602740-7 (Version None)
Quarter: 2012Q3

REPORT INFORMATION
  Report Type: 
  Country: None (occurrence: None)
  Receive Date: 20120817
  Receipt Date: 20120809
  Transmission Date: 20120928
  Serious: Yes (Hospitalization)
  Sender: FDA-Public Use
  Company Number: JP-JNJFOC-20120805127

PATIENT
  Sex: Female

DRUGS (5)
  1. MAGLAX [Concomitant]
     Indication: CONSTIPATION
     Route: 048
  2. AMLODIPINE [Concomitant]
     Indication: HYPERTENSION
     Route: 048
  3. ALENDRONATE SODIUM [Concomitant]
     Indication: OSTEOPOROSIS
     Route: 048
  4. GALANTAMINE HYDROBROMIDE [Suspect]
     Indication: DEMENTIA ALZHEIMER'S TYPE
     Route: 048
     Dates: start: 20120207, end: 20120327
  5. SEROQUEL [Concomitant]
     Indication: DELIRIUM
     Route: 048

REACTIONS (1)
  - ANGER [None]
